FAERS Safety Report 9358478 (Version 1)
Quarter: 2013Q2

REPORT INFORMATION
  Report Type: Spontaneous
  Country: US (occurrence: US)
  Receive Date: 20130620
  Receipt Date: 20130620
  Transmission Date: 20140414
  Serious: No
  Sender: FDA-Public Use
  Company Number: US-US-EMD SERONO, INC.-7024719

PATIENT
  Sex: Female

DRUGS (3)
  1. REBIF [Suspect]
     Indication: PRIMARY PROGRESSIVE MULTIPLE SCLEROSIS
     Route: 058
     Dates: start: 20100820
  2. REMMIRON [Concomitant]
     Indication: SLEEP DISORDER
  3. CELEXA [Concomitant]
     Indication: DEPRESSION

REACTIONS (8)
  - Amnesia [Not Recovered/Not Resolved]
  - Influenza [Unknown]
  - Nasopharyngitis [Unknown]
  - Primary progressive multiple sclerosis [Not Recovered/Not Resolved]
  - Injection site pain [Unknown]
  - Injection site rash [Unknown]
  - Headache [Unknown]
  - Chills [Unknown]
